FAERS Safety Report 6844350-8 (Version None)
Quarter: 2010Q2

REPORT INFORMATION
  Report Type: 
  Country: None (occurrence: None)
  Receive Date: 20100629
  Receipt Date: 20100402
  Transmission Date: 20101027
  Serious: No
  Sender: FDA-Public Use
  Company Number: US-WYE-H14428810

PATIENT
  Age: 40 Year
  Sex: Female
  Weight: 59.02 kg

DRUGS (7)
  1. PRISTIQ [Suspect]
     Indication: MIGRAINE
     Dosage: 50 MG 1X PER 1 DAY, ORAL 50 MG 1X PER 1 DAY, ORAL
     Route: 048
     Dates: start: 20100210, end: 20100322
  2. PRISTIQ [Suspect]
     Indication: MIGRAINE
     Dosage: 50 MG 1X PER 1 DAY, ORAL 50 MG 1X PER 1 DAY, ORAL
     Route: 048
     Dates: start: 20100301
  3. TOPAMAX [Concomitant]
  4. ZONEGRAN [Concomitant]
  5. SUMATRIPTAN SUCCINATE (IMITREX) [Concomitant]
  6. FIORICET [Concomitant]
  7. LEXAPRO [Concomitant]

REACTIONS (1)
  - VULVOVAGINAL PRURITUS [None]
